FAERS Safety Report 7962083-1 (Version None)
Quarter: 2011Q4

REPORT INFORMATION
  Report Type: 
  Country: None (occurrence: None)
  Receive Date: 20111207
  Receipt Date: 20111205
  Transmission Date: 20120403
  Serious: No
  Sender: FDA-Public Use
  Company Number: US-TEVA-308018USA

PATIENT
  Sex: Male
  Weight: 68.554 kg

DRUGS (12)
  1. PLAVIX [Concomitant]
  2. ZANTAC [Concomitant]
  3. SYNTHROID [Concomitant]
  4. PROSCAR [Concomitant]
  5. PROPRANOLOL [Concomitant]
  6. TRUSOPT [Concomitant]
  7. XALATAN [Concomitant]
  8. AZILECT [Suspect]
     Indication: PARKINSON'S DISEASE
     Dosage: .5 MILLIGRAM;
     Route: 048
     Dates: start: 20111001
  9. TERAZOSIN [Concomitant]
  10. SINEMET [Concomitant]
  11. COMTAN [Concomitant]
  12. PRIMIDONE [Concomitant]

REACTIONS (1)
  - EPISTAXIS [None]
